FAERS Safety Report 26147552 (Version 1)
Quarter: 2025Q4

REPORT INFORMATION
  Report Type: Report from Study
  Country: AR (occurrence: AR)
  Receive Date: 20251211
  Receipt Date: 20251211
  Transmission Date: 20260118
  Serious: No
  Sender: BIOGEN
  Company Number: AR-BIOGEN-2093988

PATIENT
  Age: 56 Year
  Sex: Female

DRUGS (1)
  1. TYSABRI [Suspect]
     Active Substance: NATALIZUMAB
     Indication: Multiple sclerosis
     Dosage: LAST DOSE: 12NOV2025. THE BATCH NUMBER AND EXPIRATION DATE WERE ASKED BUT UNKNOWN.
     Dates: start: 20210226

REACTIONS (6)
  - Hypersensitivity [Not Recovered/Not Resolved]
  - Nausea [Recovered/Resolved]
  - Dysphonia [Not Recovered/Not Resolved]
  - Bronchitis [Recovered/Resolved]
  - Influenza [Unknown]
  - Prescribed underdose [Not Recovered/Not Resolved]

NARRATIVE: CASE EVENT DATE: 20250101
